FAERS Safety Report 7772251-X (Version None)
Quarter: 2011Q3

REPORT INFORMATION
  Report Type: 
  Country: None (occurrence: None)
  Receive Date: 20110922
  Receipt Date: 20110228
  Transmission Date: 20111222
  Serious: No
  Sender: FDA-Public Use
  Company Number: US-ASTRAZENECA-2011SE11236

PATIENT
  Age: 44 Year
  Sex: Female
  Weight: 80.7 kg

DRUGS (5)
  1. LEVOTHYROXINE SODIUM [Concomitant]
     Indication: THYROID DISORDER
  2. PHENTERMINE [Concomitant]
  3. VALIUM [Concomitant]
     Indication: ANXIETY
  4. PROZAC [Concomitant]
     Indication: DEPRESSION
  5. SEROQUEL [Suspect]
     Indication: DEPRESSION
     Route: 048
     Dates: start: 20110101, end: 20110225

REACTIONS (3)
  - DRUG DOSE OMISSION [None]
  - WEIGHT INCREASED [None]
  - DEPRESSION [None]
